FAERS Safety Report 23806927 (Version 1)
Quarter: 2024Q2

REPORT INFORMATION
  Report Type: Spontaneous
  Country: US (occurrence: US)
  Receive Date: 20240502
  Receipt Date: 20240502
  Transmission Date: 20240716
  Serious: Yes (Other)
  Sender: FDA-Public Use
  Company Number: None

PATIENT
  Age: 58 Year
  Sex: Male

DRUGS (7)
  1. HEPARIN [Suspect]
     Active Substance: HEPARIN SODIUM
     Indication: Atrial fibrillation
  2. FOLIC ACID [Concomitant]
     Active Substance: FOLIC ACID
     Indication: Prophylaxis against alcoholic withdrawal syndrome
     Route: 042
  3. SALINE [Concomitant]
     Active Substance: SODIUM CHLORIDE
     Indication: Rhabdomyolysis
     Route: 040
  4. LORAZEPAM [Concomitant]
     Active Substance: LORAZEPAM
     Indication: Agitation
     Route: 042
  5. POTASSIUM [Concomitant]
     Active Substance: POTASSIUM
     Indication: Supplementation therapy
  6. MAGNESIUM [Concomitant]
     Active Substance: MAGNESIUM
     Indication: Supplementation therapy
  7. THIAMINE [Concomitant]
     Active Substance: THIAMINE
     Indication: Prophylaxis against alcoholic withdrawal syndrome
     Route: 042

REACTIONS (1)
  - Thrombocytopenia [Unknown]
